FAERS Safety Report 16856760 (Version 1)
Quarter: 2019Q3

REPORT INFORMATION
  Report Type: Spontaneous
  Country: ES (occurrence: ES)
  Receive Date: 20190926
  Receipt Date: 20190926
  Transmission Date: 20191005
  Serious: Yes (Hospitalization)
  Sender: FDA-Public Use
  Company Number: ES-MYLANLABS-2019M1089105

PATIENT
  Age: 83 Year
  Sex: Female

DRUGS (4)
  1. ALDACTONE [Interacting]
     Active Substance: SPIRONOLACTONE
     Indication: AORTIC STENOSIS
     Dosage: 1-0-0
     Route: 048
     Dates: start: 20180101
  2. TORASEMIDE [Interacting]
     Active Substance: TORSEMIDE
     Dosage: 10 MILLIGRAM. DIA
     Route: 048
     Dates: start: 20190108, end: 20190113
  3. ESCITALOPRAM [Interacting]
     Active Substance: ESCITALOPRAM OXALATE
     Indication: PRODUCT USED FOR UNKNOWN INDICATION
     Dosage: 10 MILLIGRAM, QD
     Route: 048
     Dates: start: 20150427
  4. TORASEMIDE [Suspect]
     Active Substance: TORSEMIDE
     Indication: OEDEMA PERIPHERAL
     Dosage: 5 MILLIGRAM, QD
     Route: 048
     Dates: start: 20131107, end: 20190107

REACTIONS (2)
  - Inappropriate antidiuretic hormone secretion [Recovering/Resolving]
  - Drug interaction [Unknown]

NARRATIVE: CASE EVENT DATE: 20190113
